FAERS Safety Report 10802157 (Version 2)
Quarter: 2015Q1

REPORT INFORMATION
  Report Type: Spontaneous
  Country: US (occurrence: US)
  Receive Date: 20150217
  Receipt Date: 20150317
  Transmission Date: 20150721
  Serious: Yes (Hospitalization)
  Sender: FDA-Public Use
  Company Number: US-009507513-1206USA01276

PATIENT
  Sex: Male

DRUGS (5)
  1. PROPECIA [Suspect]
     Active Substance: FINASTERIDE
     Indication: ALOPECIA
     Route: 048
     Dates: start: 200611
  2. CLONIDINE. [Concomitant]
     Active Substance: CLONIDINE
     Indication: CARDIAC DISORDER
     Dosage: 3 MG, UNK
     Dates: start: 2000
  3. LOSARTAN POTASSIUM. [Concomitant]
     Active Substance: LOSARTAN POTASSIUM
     Indication: NEPHROPATHY
     Dosage: 100 MG, UNK
     Dates: start: 2000
  4. FUROSEMIDE. [Concomitant]
     Active Substance: FUROSEMIDE
     Indication: OEDEMA
     Dosage: 40 MG, UNK
     Dates: start: 2000
  5. HYDRALAZINE [Concomitant]
     Active Substance: HYDRALAZINE HYDROCHLORIDE
     Indication: CARDIAC DISORDER
     Dosage: 10 MG, UNK
     Dates: start: 2000

REACTIONS (7)
  - Renal disorder [Unknown]
  - Sexual dysfunction [Unknown]
  - Cognitive disorder [Not Recovered/Not Resolved]
  - Libido decreased [Unknown]
  - Asthma [Unknown]
  - Genital hypoaesthesia [Unknown]
  - Disturbance in sexual arousal [Unknown]

NARRATIVE: CASE EVENT DATE: 200702
